FAERS Safety Report 17956893 (Version 1)
Quarter: 2020Q2

REPORT INFORMATION
  Report Type: Spontaneous
  Country: US (occurrence: US)
  Receive Date: 20200629
  Receipt Date: 20200629
  Transmission Date: 20200714
  Serious: Yes (Life-Threatening, Disabling)
  Sender: FDA-Public Use
  Company Number: None

PATIENT
  Age: 71 Year
  Sex: Male
  Weight: 87.75 kg

DRUGS (4)
  1. DICLOFENAC SODIUM TOPICAL GEL [Suspect]
     Active Substance: DICLOFENAC SODIUM
     Indication: TENDONITIS
     Dosage: ?          QUANTITY:1 TOPICAL CREAM;?
     Route: 061
     Dates: start: 20200606, end: 20200612
  2. APIXABAN [Concomitant]
     Active Substance: APIXABAN
  3. AMLODIPINE [Concomitant]
     Active Substance: AMLODIPINE BESYLATE
  4. LISINOPRIL. [Concomitant]
     Active Substance: LISINOPRIL

REACTIONS (8)
  - Abdominal pain upper [None]
  - Food poisoning [None]
  - Diarrhoea [None]
  - Chills [None]
  - Faeces discoloured [None]
  - Weight decreased [None]
  - Tremor [None]
  - Gastrointestinal sounds abnormal [None]

NARRATIVE: CASE EVENT DATE: 20200612
